FAERS Safety Report 17143876 (Version 2)
Quarter: 2020Q1

REPORT INFORMATION
  Report Type: Spontaneous
  Country: US (occurrence: US)
  Receive Date: 20191212
  Receipt Date: 20200108
  Transmission Date: 20200409
  Serious: Yes (Other)
  Sender: FDA-Public Use
  Company Number: US-JNJFOC-20191209004

PATIENT
  Sex: Male
  Weight: 171 kg

DRUGS (4)
  1. XARELTO [Suspect]
     Active Substance: RIVAROXABAN
     Indication: ATRIAL FIBRILLATION
     Route: 048
     Dates: start: 20191121
  2. VITAMIN C [Concomitant]
     Active Substance: ASCORBIC ACID
     Indication: SARCOIDOSIS
  3. ZOLOFT [Concomitant]
     Active Substance: SERTRALINE HYDROCHLORIDE
     Indication: ANXIETY
  4. XARELTO [Suspect]
     Active Substance: RIVAROXABAN
     Indication: CEREBROVASCULAR ACCIDENT PROPHYLAXIS

REACTIONS (6)
  - Cardioversion [Recovered/Resolved]
  - Memory impairment [Unknown]
  - Haemorrhoidal haemorrhage [Recovered/Resolved]
  - Wound haemorrhage [Recovered/Resolved]
  - Malaise [Not Recovered/Not Resolved]
  - Injection site haemorrhage [Recovered/Resolved]
